FAERS Safety Report 9798721 (Version 2)
Quarter: 2015Q3

REPORT INFORMATION
  Report Type: Spontaneous
  Country: US (occurrence: US)
  Receive Date: 20140106
  Receipt Date: 20150806
  Transmission Date: 20151125
  Serious: No
  Sender: FDA-Public Use
  Company Number: US-GILEAD-2010-0029958

PATIENT
  Age: 63 Year
  Sex: Female
  Weight: 89.81 kg

DRUGS (16)
  1. PLAQUENIL [Concomitant]
     Active Substance: HYDROXYCHLOROQUINE SULFATE
  2. KLOR-CON [Concomitant]
     Active Substance: POTASSIUM CHLORIDE
  3. CARVEDILOL. [Concomitant]
     Active Substance: CARVEDILOL
  4. LETAIRIS [Suspect]
     Active Substance: AMBRISENTAN
     Indication: PULMONARY ARTERIAL HYPERTENSION
     Route: 048
     Dates: start: 20100202
  5. ACIDOPHILUS [Concomitant]
     Active Substance: LACTOBACILLUS ACIDOPHILUS
  6. TRIMETHOPRIM. [Concomitant]
     Active Substance: TRIMETHOPRIM
  7. DARVOCET-N 100 [Concomitant]
     Active Substance: ACETAMINOPHEN\PROPOXYPHENE NAPSYLATE
  8. PRAVASTATIN [Concomitant]
     Active Substance: PRAVASTATIN\PRAVASTATIN SODIUM
  9. LEVEMIR [Concomitant]
     Active Substance: INSULIN DETEMIR
  10. OMEPRAZOLE. [Concomitant]
     Active Substance: OMEPRAZOLE
  11. GLIMEPIRIDE. [Concomitant]
     Active Substance: GLIMEPIRIDE
  12. LISINOPRIL-HCTZ [Concomitant]
     Active Substance: HYDROCHLOROTHIAZIDE\LISINOPRIL
  13. CITALOPRAM [Concomitant]
     Active Substance: CITALOPRAM HYDROBROMIDE
  14. ASPIRIN. [Concomitant]
     Active Substance: ASPIRIN
  15. FLEXERIL [Concomitant]
     Active Substance: CYCLOBENZAPRINE HYDROCHLORIDE
  16. TYLENOL WITH CODEINE [Concomitant]
     Active Substance: ACETAMINOPHEN\CODEINE PHOSPHATE

REACTIONS (1)
  - Peripheral swelling [Unknown]
